FAERS Safety Report 23188330 (Version 3)
Quarter: 2024Q1

REPORT INFORMATION
  Report Type: Spontaneous
  Country: US (occurrence: US)
  Receive Date: 20231115
  Receipt Date: 20240206
  Transmission Date: 20240410
  Serious: No
  Sender: FDA-Public Use
  Company Number: US-PFIZER INC-PV202300185095

PATIENT
  Age: 72 Year
  Sex: Male
  Weight: 117 kg

DRUGS (2)
  1. LORBRENA [Suspect]
     Active Substance: LORLATINIB
     Indication: Lung adenocarcinoma stage IV
     Dosage: 100 MG, DAILY
     Route: 048
  2. LORBRENA [Suspect]
     Active Substance: LORLATINIB
     Indication: Metastases to lung
     Dosage: 75 MG, DAILY (3 TABS DAILY)
     Route: 048

REACTIONS (2)
  - Neoplasm progression [Unknown]
  - Oedema peripheral [Unknown]
